FAERS Safety Report 6133495-6 (Version None)
Quarter: 2009Q1

REPORT INFORMATION
  Report Type: 
  Country: None (occurrence: None)
  Receive Date: 20090326
  Receipt Date: 20090318
  Transmission Date: 20090719
  Serious: Yes (Hospitalization, Other)
  Sender: FDA-Public Use
  Company Number: US-AVENTIS-200815628US

PATIENT
  Sex: Male
  Weight: 104.1 kg

DRUGS (18)
  1. LANTUS [Suspect]
     Route: 058
     Dates: start: 20050707
  2. LANTUS [Suspect]
     Dosage: DOSE: OCCASIONALLY INCREASES DOSE ACCORDING TO SUGAR LEVELS
     Route: 058
     Dates: start: 20010101
  3. AVELOX [Suspect]
     Indication: BRONCHITIS
     Route: 048
     Dates: start: 20080110, end: 20080110
  4. AVELOX [Suspect]
     Route: 048
     Dates: start: 20080110, end: 20080110
  5. AVODART [Concomitant]
     Indication: PROSTATIC DISORDER
  6. CYMBALTA [Concomitant]
  7. FUROSEMIDE [Concomitant]
  8. LISINOPRIL [Concomitant]
     Indication: HYPERTENSION
  9. PROTONIX [Concomitant]
  10. ASPIRIN [Concomitant]
     Dosage: DOSE: ^HALF AN ADULT^
  11. METFORMIN [Concomitant]
  12. KLOR-CON [Concomitant]
     Dosage: DOSE: 10 ^MG^
  13. CRESTOR [Concomitant]
  14. HUMALOG [Concomitant]
     Dosage: DOSE: 7 OR 8 UNITS DEPENDING ON SUGAR
  15. VERAPAMIL [Concomitant]
     Indication: HYPERTENSION
  16. PROVENTIL                          /00139501/ [Concomitant]
     Indication: ASTHMA
     Dosage: DOSE: UNK
     Route: 055
  17. ALBUTEROL [Concomitant]
     Dosage: DOSE: UNK
  18. DETROL LA [Concomitant]
     Dosage: DOSE: UNK

REACTIONS (5)
  - ANAPHYLACTIC REACTION [None]
  - ASTHMA [None]
  - DYSPNOEA [None]
  - RENAL FAILURE ACUTE [None]
  - RESPIRATORY FAILURE [None]
